FAERS Safety Report 23306304 (Version 2)
Quarter: 2023Q4

REPORT INFORMATION
  Report Type: Spontaneous
  Country: NL (occurrence: NL)
  Receive Date: 20231218
  Receipt Date: 20231227
  Transmission Date: 20240109
  Serious: Yes (Life-Threatening, Hospitalization, Other)
  Sender: FDA-Public Use
  Company Number: NL-ALKEM LABORATORIES LIMITED-NL-ALKEM-2023-15612

PATIENT
  Age: 55 Year
  Sex: Female
  Weight: 125 kg

DRUGS (16)
  1. METFORMIN HYDROCHLORIDE [Suspect]
     Active Substance: METFORMIN HYDROCHLORIDE
     Indication: Product used for unknown indication
     Dosage: 82.5 GRAM
     Route: 048
  2. METFORMIN HYDROCHLORIDE [Suspect]
     Active Substance: METFORMIN HYDROCHLORIDE
     Dosage: 500 GRAM
     Route: 048
  3. METFORMIN HYDROCHLORIDE [Suspect]
     Active Substance: METFORMIN HYDROCHLORIDE
     Dosage: 165 DOSAGE FORM, (165 TABLETS)
     Route: 048
  4. METFORMIN HYDROCHLORIDE [Suspect]
     Active Substance: METFORMIN HYDROCHLORIDE
     Dosage: 660 MILLIGRAM/KILOGRAM
     Route: 048
  5. ACETAMINOPHEN [Interacting]
     Active Substance: ACETAMINOPHEN
     Indication: Product used for unknown indication
     Dosage: 500 MILLIGRAM
     Route: 048
  6. ACETAMINOPHEN [Interacting]
     Active Substance: ACETAMINOPHEN
     Dosage: 10 GRAM
     Route: 048
  7. ACETAMINOPHEN [Interacting]
     Active Substance: ACETAMINOPHEN
     Dosage: 80 MILLIGRAM/KILOGRAM
     Route: 048
  8. ACETAMINOPHEN [Interacting]
     Active Substance: ACETAMINOPHEN
     Dosage: 20 DOSAGE FORM, (20 TABLETS)
     Route: 048
  9. SIMVASTATIN [Interacting]
     Active Substance: SIMVASTATIN
     Indication: Product used for unknown indication
     Dosage: 40 MILLIGRAM
     Route: 048
  10. SIMVASTATIN [Interacting]
     Active Substance: SIMVASTATIN
     Dosage: 1520 MILLIGRAM
     Route: 048
  11. SIMVASTATIN [Interacting]
     Active Substance: SIMVASTATIN
     Dosage: 12 MILLIGRAM/KILOGRAM
     Route: 048
  12. SIMVASTATIN [Interacting]
     Active Substance: SIMVASTATIN
     Dosage: 38 DOSAGE FORM, (38 TABLETS)
     Route: 048
  13. SEMAGLUTIDE [Suspect]
     Active Substance: SEMAGLUTIDE
     Indication: Product used for unknown indication
     Dosage: 14 MILLIGRAM
     Route: 048
  14. SEMAGLUTIDE [Suspect]
     Active Substance: SEMAGLUTIDE
     Dosage: 420 MILLIGRAM
     Route: 048
  15. SEMAGLUTIDE [Suspect]
     Active Substance: SEMAGLUTIDE
     Dosage: 3.4 MILLIGRAM/KILOGRAM
     Route: 048
  16. SEMAGLUTIDE [Suspect]
     Active Substance: SEMAGLUTIDE
     Dosage: 30 DOSAGE FORM, (30 TABLETS)
     Route: 048

REACTIONS (8)
  - Distributive shock [Unknown]
  - Lactic acidosis [Unknown]
  - Toxicity to various agents [Unknown]
  - Hypoglycaemia [Recovering/Resolving]
  - Suicide attempt [Unknown]
  - Overdose [Unknown]
  - Alanine aminotransferase increased [Unknown]
  - Aspartate aminotransferase increased [Unknown]
